FAERS Safety Report 14305080 (Version 1)
Quarter: 2017Q4

REPORT INFORMATION
  Report Type: Report from Study
  Country: JP (occurrence: JP)
  Receive Date: 20171219
  Receipt Date: 20171219
  Transmission Date: 20180321
  Serious: Yes (Other)
  Sender: FDA-Public Use
  Company Number: JP-OTSUKA-004789

PATIENT
  Age: 57 Year
  Sex: Male
  Weight: 39 kg

DRUGS (39)
  1. ARIPIPRAZOLE. [Suspect]
     Active Substance: ARIPIPRAZOLE
     Indication: SCHIZOPHRENIA
     Dosage: 12 MG, QD
     Route: 048
     Dates: start: 20080520, end: 20080528
  2. ARIPIPRAZOLE. [Suspect]
     Active Substance: ARIPIPRAZOLE
     Dosage: 12 MG, QD
     Route: 048
     Dates: start: 20080819, end: 20080821
  3. SULPIRIDE [Concomitant]
     Active Substance: SULPIRIDE
     Dosage: 150 MG, QD
     Route: 048
     Dates: start: 20080819
  4. RISPERIDONE. [Concomitant]
     Active Substance: RISPERIDONE
     Dosage: 4 MG, QD
     Route: 048
     Dates: start: 20080804, end: 20080810
  5. HALOPERIDOL. [Concomitant]
     Active Substance: HALOPERIDOL
     Dosage: 3 MG, QD
     Route: 048
     Dates: start: 20080605, end: 20080611
  6. ARIPIPRAZOLE. [Suspect]
     Active Substance: ARIPIPRAZOLE
     Dosage: 30 MG, QD
     Route: 048
     Dates: start: 20080619, end: 20080730
  7. SULPIRIDE [Concomitant]
     Active Substance: SULPIRIDE
     Indication: SCHIZOPHRENIA
     Dosage: 300 MG, QD
     Route: 048
     Dates: end: 20080618
  8. SULPIRIDE [Concomitant]
     Active Substance: SULPIRIDE
     Dosage: 150 MG, QD
     Route: 048
     Dates: start: 20080619, end: 20080730
  9. RISPERIDONE. [Concomitant]
     Active Substance: RISPERIDONE
     Indication: SCHIZOPHRENIA
     Dosage: 9 MG, QD
     Route: 048
     Dates: end: 20080611
  10. SENNOSIDE [Concomitant]
     Active Substance: SENNOSIDES
     Indication: PRODUCT USED FOR UNKNOWN INDICATION
     Dosage: 24 MG, QD
     Route: 048
     Dates: start: 20070308
  11. RISPERIDONE. [Concomitant]
     Active Substance: RISPERIDONE
     Indication: PRODUCT USED FOR UNKNOWN INDICATION
     Dosage: STARTED BEFORE 2005
     Route: 065
  12. RISPERIDONE. [Concomitant]
     Active Substance: RISPERIDONE
     Dosage: 4 MG, QD
     Route: 048
     Dates: start: 20080619, end: 20080702
  13. RISPERIDONE. [Concomitant]
     Active Substance: RISPERIDONE
     Dosage: 2 MG, QD
     Route: 048
     Dates: start: 20080703, end: 20080730
  14. RISPERIDONE. [Concomitant]
     Active Substance: RISPERIDONE
     Dosage: 8 MG, QD
     Route: 048
     Dates: start: 20080814
  15. FAMOTIDINE. [Concomitant]
     Active Substance: FAMOTIDINE
     Indication: PRODUCT USED FOR UNKNOWN INDICATION
     Dosage: 20 MG, QD
     Route: 048
  16. BIPERIDEN HCL [Concomitant]
     Active Substance: BIPERIDEN HYDROCHLORIDE
     Indication: PRODUCT USED FOR UNKNOWN INDICATION
     Dosage: UNK
     Route: 065
     Dates: end: 20080731
  17. BIPERIDEN HYDROCHLORIDE [Concomitant]
     Active Substance: BIPERIDEN HYDROCHLORIDE
     Indication: PRODUCT USED FOR UNKNOWN INDICATION
     Dosage: 3 MG, QD
     Route: 048
     Dates: end: 20070618
  18. RISPERIDONE. [Concomitant]
     Active Substance: RISPERIDONE
     Dosage: 7 MG, QD
     Route: 048
     Dates: start: 20080612, end: 20080618
  19. FLUNITRAZEPAM [Concomitant]
     Active Substance: FLUNITRAZEPAM
     Indication: PRODUCT USED FOR UNKNOWN INDICATION
     Dosage: 2 MG, QD
     Route: 048
  20. ARIPIPRAZOLE. [Suspect]
     Active Substance: ARIPIPRAZOLE
     Dosage: 24 MG, QD
     Route: 048
     Dates: start: 20080731, end: 20080813
  21. HALOPERIDOL. [Concomitant]
     Active Substance: HALOPERIDOL
     Dosage: 4.5 MG, QD
     Route: 048
     Dates: start: 20080911
  22. SENNA [Concomitant]
     Active Substance: SENNA LEAF\SENNOSIDES\SENNOSIDES A AND B
     Indication: PRODUCT USED FOR UNKNOWN INDICATION
     Dosage: TABS
     Route: 065
     Dates: start: 20070308
  23. ARIPIPRAZOLE. [Suspect]
     Active Substance: ARIPIPRAZOLE
     Dosage: 18 MG, QD
     Route: 048
     Dates: start: 20080529, end: 20080611
  24. ARIPIPRAZOLE. [Suspect]
     Active Substance: ARIPIPRAZOLE
     Dosage: 18 MG, QD
     Route: 048
     Dates: start: 20080814, end: 20080818
  25. BROMAZEPAM [Concomitant]
     Active Substance: BROMAZEPAM
     Indication: SCHIZOPHRENIA
     Dosage: 15 MG, QD
     Route: 048
     Dates: end: 20080702
  26. BROMAZEPAM [Concomitant]
     Active Substance: BROMAZEPAM
     Dosage: 15 MG, QD
     Route: 048
     Dates: start: 20080819
  27. HALOPERIDOL. [Concomitant]
     Active Substance: HALOPERIDOL
     Dosage: 4.5 MG, QD
     Route: 048
     Dates: start: 20080826, end: 20080828
  28. HALOPERIDOL. [Concomitant]
     Active Substance: HALOPERIDOL
     Indication: PRODUCT USED FOR UNKNOWN INDICATION
     Dosage: INJECTION
     Route: 065
     Dates: start: 20080805, end: 20080901
  29. ARIPIPRAZOLE. [Suspect]
     Active Substance: ARIPIPRAZOLE
     Dosage: 6 MG, QD
     Route: 048
     Dates: start: 20080822, end: 20080825
  30. RISPERIDONE. [Concomitant]
     Active Substance: RISPERIDONE
     Dosage: 6 MG, QD
     Route: 048
     Dates: start: 20080811, end: 20080813
  31. BROMAZEPAM [Concomitant]
     Active Substance: BROMAZEPAM
     Dosage: 10 MG, QD
     Route: 048
     Dates: start: 20080703, end: 20080818
  32. SULPIRIDE [Concomitant]
     Active Substance: SULPIRIDE
     Indication: PRODUCT USED FOR UNKNOWN INDICATION
     Dosage: STARTED BEFORE 2005
     Route: 065
  33. ARIPIPRAZOLE. [Suspect]
     Active Substance: ARIPIPRAZOLE
     Dosage: 24 MG, QD
     Route: 048
     Dates: start: 20080612, end: 20080618
  34. BIPERIDEN HYDROCHLORIDE [Concomitant]
     Active Substance: BIPERIDEN HYDROCHLORIDE
     Dosage: 2 MG, QD
     Route: 048
     Dates: start: 20080619, end: 20080731
  35. HALOPERIDOL. [Concomitant]
     Active Substance: HALOPERIDOL
     Indication: SCHIZOPHRENIA
     Dosage: 15 MG, QD
     Route: 048
     Dates: end: 20080528
  36. HALOPERIDOL. [Concomitant]
     Active Substance: HALOPERIDOL
     Dosage: 9 MG, QD
     Route: 048
     Dates: start: 20080529, end: 20080604
  37. HALOPERIDOL. [Concomitant]
     Active Substance: HALOPERIDOL
     Dosage: 6 MG, QD
     Route: 048
     Dates: start: 20080829, end: 20080910
  38. TRIAZOLAM. [Concomitant]
     Active Substance: TRIAZOLAM
     Indication: PRODUCT USED FOR UNKNOWN INDICATION
     Dosage: 0.5 MG, QD
     Route: 048
  39. HALOPERIDOL. [Concomitant]
     Active Substance: HALOPERIDOL
     Indication: SCHIZOPHRENIA
     Dosage: 5 MG, QD
     Route: 042
     Dates: start: 20080805, end: 20080901

REACTIONS (4)
  - Muscular weakness [Recovered/Resolved]
  - Delusion [Recovering/Resolving]
  - Hallucination [Recovering/Resolving]
  - Diet refusal [Recovered/Resolved]

NARRATIVE: CASE EVENT DATE: 20080729
